FAERS Safety Report 25663713 (Version 1)
Quarter: 2025Q3

REPORT INFORMATION
  Report Type: Spontaneous
  Country: AU (occurrence: AU)
  Receive Date: 20250811
  Receipt Date: 20250811
  Transmission Date: 20251020
  Serious: Yes (Other)
  Sender: ACCORD
  Company Number: None

PATIENT
  Age: 57 Year
  Sex: Female

DRUGS (8)
  1. MYCOPHENOLATE MOFETIL [Suspect]
     Active Substance: MYCOPHENOLATE MOFETIL
     Indication: Product used for unknown indication
  2. PREDNISOLONE [Suspect]
     Active Substance: PREDNISOLONE
     Indication: Product used for unknown indication
  3. FLUCONAZOLE [Concomitant]
     Active Substance: FLUCONAZOLE
  4. HYDROXYCHLOROQUINE SULFATE [Concomitant]
     Active Substance: HYDROXYCHLOROQUINE SULFATE
  5. METHYLPREDNISOLONE [Concomitant]
     Active Substance: METHYLPREDNISOLONE
  6. PANTOPRAZOLE SODIUM [Concomitant]
     Active Substance: PANTOPRAZOLE SODIUM
  7. ACETAMINOPHEN [Concomitant]
     Active Substance: ACETAMINOPHEN
  8. RITUXIMAB [Concomitant]
     Active Substance: RITUXIMAB

REACTIONS (9)
  - Off label use [Unknown]
  - Meningitis cryptococcal [Unknown]
  - Myelopathy [Unknown]
  - Osteonecrosis [Unknown]
  - Arthralgia [Unknown]
  - Cervical dysplasia [Unknown]
  - Condition aggravated [Unknown]
  - Episcleritis [Unknown]
  - Epstein-Barr virus infection [Unknown]
